FAERS Safety Report 15067959 (Version 2)
Quarter: 2018Q2

REPORT INFORMATION
  Report Type: Spontaneous
  Country: TH (occurrence: TH)
  Receive Date: 20180626
  Receipt Date: 20180626
  Transmission Date: 20180711
  Serious: Yes (Other)
  Sender: FDA-Public Use
  Company Number: PHHY2018TH023771

PATIENT
  Age: 68 Year
  Sex: Male

DRUGS (22)
  1. IVABRADINE [Suspect]
     Active Substance: IVABRADINE
     Indication: PRODUCT USED FOR UNKNOWN INDICATION
     Dosage: 5 1/2*2PC
     Route: 065
  2. ENTRESTO [Suspect]
     Active Substance: SACUBITRIL\VALSARTAN
     Indication: CARDIAC FAILURE CHRONIC
     Dosage: 50 MG, BID (1 BY 2 PC)
     Route: 048
  3. ENTRESTO [Suspect]
     Active Substance: SACUBITRIL\VALSARTAN
     Dosage: 50 MG, BID (1 BY 2 PC)
     Route: 048
  4. ATORVASTATIN [Suspect]
     Active Substance: ATORVASTATIN
     Indication: PRODUCT USED FOR UNKNOWN INDICATION
     Dosage: 40 OT, QD (1*1 PC)
     Route: 065
  5. OMEPRAZOLE. [Suspect]
     Active Substance: OMEPRAZOLE
     Indication: PRODUCT USED FOR UNKNOWN INDICATION
     Dosage: 20 OT, QD (1*1 PC)
     Route: 065
  6. OMEPRAZOLE. [Suspect]
     Active Substance: OMEPRAZOLE
     Dosage: 20 OT, QD (1*1 PC)
     Route: 065
  7. ASA [Suspect]
     Active Substance: ASPIRIN
     Dosage: 81 OT, QD (1*1 PC)
     Route: 065
  8. IVABRADINE [Suspect]
     Active Substance: IVABRADINE
     Dosage: 5 1*2 PC
     Route: 065
  9. ENTRESTO [Suspect]
     Active Substance: SACUBITRIL\VALSARTAN
     Dosage: 100 MG, BID (1 BY 2 PC)
     Route: 048
  10. ATORVASTATIN [Suspect]
     Active Substance: ATORVASTATIN
     Dosage: 40 OT, QD (1*1 PC)
     Route: 065
  11. FUROSEMIDE. [Suspect]
     Active Substance: FUROSEMIDE
     Indication: PRODUCT USED FOR UNKNOWN INDICATION
     Dosage: 40 OT, QD (1*1 PC)
     Route: 065
  12. ALDACTONE [Suspect]
     Active Substance: SPIRONOLACTONE
     Dosage: 25 OT, QD (1*1 PC)
     Route: 065
  13. ASA [Suspect]
     Active Substance: ASPIRIN
     Indication: PRODUCT USED FOR UNKNOWN INDICATION
     Dosage: 81 OT, QD (1*1 PC)
     Route: 065
  14. ALDACTONE [Suspect]
     Active Substance: SPIRONOLACTONE
     Indication: PRODUCT USED FOR UNKNOWN INDICATION
     Dosage: 25 OT, QD (1*1 PC)
     Route: 065
  15. IVABRADINE [Suspect]
     Active Substance: IVABRADINE
     Dosage: 5 1/2*2PC
     Route: 065
  16. BISOPROLOL [Suspect]
     Active Substance: BISOPROLOL
     Dosage: 2.5 ?*1PC
     Route: 065
  17. BISOPROLOL [Suspect]
     Active Substance: BISOPROLOL
     Dosage: 2.5 ?*2 PC
     Route: 065
  18. IVABRADINE [Suspect]
     Active Substance: IVABRADINE
     Dosage: 5 1*2 PC
     Route: 065
  19. BISOPROLOL [Suspect]
     Active Substance: BISOPROLOL
     Indication: PRODUCT USED FOR UNKNOWN INDICATION
     Dosage: 2.5 ?*1PC
     Route: 065
  20. ENTRESTO [Suspect]
     Active Substance: SACUBITRIL\VALSARTAN
     Dosage: 100 MG, BID (1 BY 2 PC)
     Route: 048
  21. CLOPIDOGREL [Suspect]
     Active Substance: CLOPIDOGREL BISULFATE
     Indication: PRODUCT USED FOR UNKNOWN INDICATION
     Dosage: 75 OT, QD (1*1 PC)
     Route: 065
  22. FUROSEMIDE. [Suspect]
     Active Substance: FUROSEMIDE
     Dosage: 40 1*1 PC 2-1-0 PC
     Route: 065

REACTIONS (13)
  - Hypokalaemia [Recovered/Resolved]
  - Haematocrit decreased [Unknown]
  - Dizziness [Unknown]
  - Orthopnoea [Recovered/Resolved]
  - Ventricular hypokinesia [Unknown]
  - Dyspnoea [Recovered/Resolved]
  - Oedema [Unknown]
  - Dyspnoea paroxysmal nocturnal [Recovered/Resolved]
  - Blood pressure diastolic decreased [Unknown]
  - N-terminal prohormone brain natriuretic peptide increased [Unknown]
  - Left ventricular dysfunction [Unknown]
  - Gait inability [Unknown]
  - Ejection fraction decreased [Unknown]
